FAERS Safety Report 5593394-5 (Version None)
Quarter: 2008Q1

REPORT INFORMATION
  Report Type: 
  Country: None (occurrence: None)
  Receive Date: 20080116
  Receipt Date: 20080110
  Transmission Date: 20080703
  Serious: Yes (Hospitalization)
  Sender: FDA-Public Use
  Company Number: US-BRISTOL-MYERS SQUIBB COMPANY-13979547

PATIENT
  Age: 72 Year
  Sex: Female
  Weight: 75 kg

DRUGS (10)
  1. VINFLUNINE [Suspect]
     Indication: NON-SMALL CELL LUNG CANCER
     Dosage: EXPIRY DATE FOR LOT NUMBER 7C33262- 31MAR2009. VINFLUNINE 320MG/M2
     Route: 042
     Dates: start: 20071105, end: 20071105
  2. CETUXIMAB [Suspect]
     Indication: NON-SMALL CELL LUNG CANCER
     Dosage: TREATMENT TAKEN ALSO ON 19-NOV-2007.
     Dates: start: 20071105, end: 20071105
  3. LEVOXYL [Concomitant]
  4. CALCIUM GLUCONATE [Concomitant]
  5. COUMADIN [Concomitant]
     Indication: PROPHYLAXIS
  6. ASPIRIN [Concomitant]
  7. VICODIN [Concomitant]
  8. VITAMIN [Concomitant]
  9. ALEVE [Concomitant]
  10. PREDNISONE TAB [Concomitant]
     Route: 048

REACTIONS (7)
  - ABDOMINAL PAIN [None]
  - BONE MARROW FAILURE [None]
  - CONSTIPATION [None]
  - HEADACHE [None]
  - ILEUS PARALYTIC [None]
  - NAUSEA [None]
  - VOMITING [None]
